FAERS Safety Report 8094880-9 (Version None)
Quarter: 2012Q1

REPORT INFORMATION
  Report Type: 
  Country: None (occurrence: None)
  Receive Date: 20120130
  Receipt Date: 20120120
  Transmission Date: 20120608
  Serious: Yes (Hospitalization, Other)
  Sender: FDA-Public Use
  Company Number: US-BIOGENIDEC-2012BI002633

PATIENT
  Age: 53 Year
  Sex: Female

DRUGS (1)
  1. TYSABRI [Suspect]
     Indication: MULTIPLE SCLEROSIS
     Route: 042
     Dates: start: 20071001

REACTIONS (5)
  - BILIARY CIRRHOSIS PRIMARY [None]
  - DYSPHAGIA [None]
  - GALLBLADDER DISORDER [None]
  - PRURITUS [None]
  - VISUAL IMPAIRMENT [None]
